FAERS Safety Report 15638533 (Version 1)
Quarter: 2018Q4

REPORT INFORMATION
  Report Type: Spontaneous
  Country: US (occurrence: US)
  Receive Date: 20181120
  Receipt Date: 20181120
  Transmission Date: 20190205
  Serious: No
  Sender: FDA-Public Use
  Company Number: US-ENDO PHARMACEUTICALS INC-2018-013620

PATIENT
  Age: 64 Year
  Sex: Female

DRUGS (1)
  1. ALPRAZOLAM TABLETS 0.5 MG [Suspect]
     Active Substance: ALPRAZOLAM
     Indication: ANXIETY
     Dosage: UNK UNK, TID, 8AM, 3PM, AT BEDTIME
     Route: 048
     Dates: start: 20171230, end: 20180103

REACTIONS (7)
  - Syncope [Unknown]
  - Feeling jittery [Recovering/Resolving]
  - Nervousness [Recovering/Resolving]
  - Malaise [Recovering/Resolving]
  - Dizziness [Recovering/Resolving]
  - Polydipsia [Recovering/Resolving]
  - Product odour abnormal [Recovering/Resolving]

NARRATIVE: CASE EVENT DATE: 20171229
